FAERS Safety Report 9348417 (Version 2)
Quarter: 2013Q3

REPORT INFORMATION
  Report Type: Spontaneous
  Country: IT (occurrence: IT)
  Receive Date: 20130614
  Receipt Date: 20130801
  Transmission Date: 20140515
  Serious: Yes (Hospitalization)
  Sender: FDA-Public Use
  Company Number: IT-VERTEX PHARMACEUTICALS INC-2013-006733

PATIENT
  Age: 62 Year
  Sex: Male
  Weight: 90 kg

DRUGS (3)
  1. INCIVO [Suspect]
     Indication: CHRONIC HEPATITIS C
     Dosage: 2250 MG, QD, TABLET
     Route: 048
     Dates: start: 20130511, end: 20130529
  2. REBETOL [Suspect]
     Indication: CHRONIC HEPATITIS C
     Dosage: DOSAGE FORM: CAPSULE, HARD
     Route: 048
     Dates: start: 20130511, end: 20130529
  3. PEGINTRON [Suspect]
     Indication: CHRONIC HEPATITIS C
     Dosage: DOSAGE FORM: SOLUTION FOR INJECTION
     Route: 058
     Dates: start: 20130511, end: 20130525

REACTIONS (4)
  - Faeces discoloured [Recovered/Resolved]
  - Asthenia [Recovered/Resolved]
  - Occult blood [Recovered/Resolved]
  - Anaemia [Recovered/Resolved]
